FAERS Safety Report 8052223-0 (Version None)
Quarter: 2012Q1

REPORT INFORMATION
  Report Type: 
  Country: None (occurrence: None)
  Receive Date: 20120111
  Receipt Date: 20120104
  Transmission Date: 20120608
  Serious: Yes (Other)
  Sender: FDA-Public Use
  Company Number: 2011SP041378

PATIENT
  Sex: Female
  Weight: 66.2 kg

DRUGS (2)
  1. IMPLANON [Suspect]
     Indication: CONTRACEPTION
     Dosage: 1 DF;SC ; 1 DF;SC
     Route: 058
     Dates: start: 20100521
  2. IMPLANON [Suspect]
     Indication: CONTRACEPTION
     Dosage: 1 DF;SC ; 1 DF;SC
     Route: 058
     Dates: start: 20070627, end: 20100521

REACTIONS (2)
  - DEVICE DISLOCATION [None]
  - BREAST CANCER [None]
